FAERS Safety Report 15604956 (Version 1)
Quarter: 2018Q4

REPORT INFORMATION
  Report Type: Spontaneous
  Country: BE (occurrence: BE)
  Receive Date: 20181111
  Receipt Date: 20181111
  Transmission Date: 20190205
  Serious: Yes (Hospitalization)
  Sender: FDA-Public Use
  Company Number: BE-TEVA-2018-BE-973772

PATIENT
  Age: 44 Year
  Sex: Male
  Weight: 82 kg

DRUGS (17)
  1. AACIDEXAM [Concomitant]
     Active Substance: DEXAMETHASONE
     Dosage: 10 MILLIGRAM DAILY;
     Route: 042
     Dates: start: 20180917, end: 20180922
  2. CISPLATIN. [Suspect]
     Active Substance: CISPLATIN
     Indication: TESTICULAR NEOPLASM
     Dosage: TIP PROTOCOL (PACLITAXEL IFOSFAMIDE CISPLATIN 1Q3SEM: CISPLATIN 25MG/M2:50 MG AT J2 AT J5
     Route: 042
     Dates: start: 20180918, end: 20180922
  3. ZANTAC [Concomitant]
     Active Substance: RANITIDINE HYDROCHLORIDE
     Dosage: 50 MILLIGRAM DAILY;
     Route: 042
     Dates: start: 20180917, end: 20180918
  4. PANTOMED (PANTOPRAZOLE SODIUM SESQUIHYDRATE) [Concomitant]
     Active Substance: PANTOPRAZOLE SODIUM
     Dosage: 20 MILLIGRAM DAILY; INCREASED DOSES FOR DIGESTIVE HEMORRHAGE ON GASTRIC ULCER AND ESOPHAGITIS GRADE
     Route: 048
  5. PACLITAXEL. [Concomitant]
     Active Substance: PACLITAXEL
     Indication: TESTICULAR NEOPLASM
     Dosage: TIP PROTOCOL (PACLITAXEL IFOSFAMIDE CISPLATIN 1Q3SEM)??PACLITAXEL: 250MG/M2:501 MG AT J1
     Route: 042
     Dates: start: 20180917, end: 20180918
  6. CATAFLAM [Suspect]
     Active Substance: DICLOFENAC POTASSIUM
     Dosage: 50 MILLIGRAM DAILY;
     Route: 048
     Dates: start: 201809, end: 20180925
  7. INNOHEP [Concomitant]
     Active Substance: TINZAPARIN SODIUM
     Indication: DEEP VEIN THROMBOSIS
     Dosage: 1 IU (INTERNATIONAL UNIT) DAILY; SWITCH FOR HEPARIN DURING HOSPITALIZATION
     Route: 058
     Dates: start: 20180801, end: 20180925
  8. ZOFRAN [Concomitant]
     Active Substance: ONDANSETRON HYDROCHLORIDE
     Dosage: 16 MILLIGRAM DAILY;
     Route: 048
     Dates: start: 20180922, end: 20180926
  9. PHENERGAN [Concomitant]
     Active Substance: PROMETHAZINE HYDROCHLORIDE
     Dosage: 50 MILLIGRAM DAILY;
     Route: 030
     Dates: start: 20180917, end: 20180918
  10. UROMITEXAN [Concomitant]
     Active Substance: MESNA
     Dosage: 1 GRAM DAILY; 500MG/M2
     Route: 042
     Dates: start: 20180918, end: 20180922
  11. DEXAMETHASONE. [Concomitant]
     Active Substance: DEXAMETHASONE
     Dosage: 4 MILLIGRAM DAILY;
     Route: 048
     Dates: start: 20180922, end: 20180925
  12. TRADONAL RETARD [Concomitant]
     Active Substance: TRAMADOL HYDROCHLORIDE
     Indication: PAIN
     Dosage: 100 MILLIGRAM DAILY;
     Route: 048
     Dates: start: 201809
  13. TEMESTA [LORAZEPAM] [Concomitant]
     Active Substance: LORAZEPAM
     Dosage: 1 MILLIGRAM DAILY;
     Route: 048
     Dates: start: 20180917, end: 20180922
  14. NEULASTA [Concomitant]
     Active Substance: PEGFILGRASTIM
     Dosage: 6 MILLIGRAM DAILY;
     Route: 058
     Dates: start: 20180922, end: 20180923
  15. ZOFRAN [Concomitant]
     Active Substance: ONDANSETRON HYDROCHLORIDE
     Dosage: 16 MILLIGRAM DAILY;
     Route: 042
     Dates: start: 20180917, end: 20180922
  16. HOLOXAN [Suspect]
     Active Substance: IFOSFAMIDE
     Indication: TESTICULAR NEOPLASM
     Dosage: TIP PROTOCOL (PACLITAXEL IFOSFAMIDE CISPLATIN 1Q3SEM: IFOSFAMIDE 1500MG/M2:3G MG AT J2 TO J5
     Route: 042
     Dates: start: 20180918, end: 20180922
  17. IMODIUM [Concomitant]
     Active Substance: LOPERAMIDE HYDROCHLORIDE
     Indication: DIARRHOEA
     Dosage: 12 MILLIGRAM DAILY; QQ J PROCESSING IF NECESSARY
     Route: 048
     Dates: start: 20180916, end: 201809

REACTIONS (4)
  - Septic shock [Not Recovered/Not Resolved]
  - Febrile neutropenia [Not Recovered/Not Resolved]
  - Acute kidney injury [Not Recovered/Not Resolved]
  - Hypertension [Not Recovered/Not Resolved]

NARRATIVE: CASE EVENT DATE: 20180925
